FAERS Safety Report 8835806 (Version 1)
Quarter: 2012Q4

REPORT INFORMATION
  Report Type: 
  Country: GB (occurrence: GB)
  Receive Date: 20121011
  Receipt Date: 20121011
  Transmission Date: 20130627
  Serious: Yes (Hospitalization)
  Sender: FDA-Public Use
  Company Number: GB-GLAXOSMITHKLINE-B0813372B

PATIENT
  Age: 21 Year
  Sex: Female
  Weight: 100 kg

DRUGS (3)
  1. LAMOTRIGINE [Suspect]
     Indication: EPILEPSY
     Dosage: 300MG Per day
     Route: 065
     Dates: start: 201008
  2. LAMOTRIGINE [Suspect]
     Indication: PRODUCT USED FOR UNKNOWN INDICATION
     Route: 067
  3. FOLATE [Concomitant]
     Dosage: 5MG per day
     Route: 048

REACTIONS (4)
  - Convulsion [Unknown]
  - Live birth [Unknown]
  - Exposure during pregnancy [Unknown]
  - Exposure via body fluid [Unknown]
